FAERS Safety Report 9941178 (Version 1)
Quarter: 2014Q1

REPORT INFORMATION
  Report Type: Spontaneous
  Country: US (occurrence: US)
  Receive Date: 20140303
  Receipt Date: 20140303
  Transmission Date: 20141002
  Serious: No
  Sender: FDA-Public Use
  Company Number: US-ABBVIE-13P-163-1041792-00

PATIENT
  Age: 30 Year
  Sex: Female
  Weight: 58.11 kg

DRUGS (5)
  1. HUMIRA [Suspect]
     Indication: COLITIS ULCERATIVE
     Dates: start: 20121214, end: 20121214
  2. HUMIRA [Suspect]
     Dates: start: 20121228, end: 20121228
  3. HUMIRA [Suspect]
     Dates: start: 20130111
  4. COLAZAL [Concomitant]
     Indication: COLITIS ULCERATIVE
  5. SPRINTEC [Concomitant]
     Indication: PRODUCT USED FOR UNKNOWN INDICATION

REACTIONS (1)
  - Tremor [Not Recovered/Not Resolved]
